FAERS Safety Report 25721151 (Version 1)
Quarter: 2025Q3

REPORT INFORMATION
  Report Type: Spontaneous
  Country: CN (occurrence: CN)
  Receive Date: 20250825
  Receipt Date: 20250825
  Transmission Date: 20251021
  Serious: Yes (Other)
  Sender: BAXTER
  Company Number: None

PATIENT
  Age: 59 Year
  Sex: Female
  Weight: 60 kg

DRUGS (5)
  1. CYCLOPHOSPHAMIDE [Suspect]
     Active Substance: CYCLOPHOSPHAMIDE
     Indication: HER2 low breast cancer
     Dosage: 850 MG, QD (INTRAVENOUS PUSH)
     Route: 042
     Dates: start: 20250418, end: 20250418
  2. SODIUM CHLORIDE [Suspect]
     Active Substance: SODIUM CHLORIDE
     Dosage: 50 ML, QD (CYCLOPHOSPHAMIDE + NS)
     Route: 042
     Dates: start: 20250418, end: 20250418
  3. SODIUM CHLORIDE [Suspect]
     Active Substance: SODIUM CHLORIDE
     Dosage: 100 ML, QD (PHARMORUBICIN + NS)
     Route: 041
     Dates: start: 20250418, end: 20250418
  4. EPIRUBICIN [Suspect]
     Active Substance: EPIRUBICIN
     Indication: HER2 low breast cancer
     Dosage: 132 MG, QD
     Route: 041
     Dates: start: 20250418, end: 20250418
  5. RYZNEUTA [Concomitant]
     Active Substance: EFBEMALENOGRASTIM ALFA-VUXW
     Route: 058
     Dates: start: 20250420

REACTIONS (2)
  - Neutrophil count decreased [Recovered/Resolved]
  - White blood cell count decreased [Recovered/Resolved]

NARRATIVE: CASE EVENT DATE: 20250424
